FAERS Safety Report 22974395 (Version 2)
Quarter: 2024Q2

REPORT INFORMATION
  Report Type: Report from Study
  Country: US (occurrence: US)
  Receive Date: 20230923
  Receipt Date: 20240624
  Transmission Date: 20240715
  Serious: Yes (Other)
  Sender: FDA-Public Use
  Company Number: US-ABBVIE-5415728

PATIENT
  Age: 71 Year
  Sex: Female

DRUGS (1)
  1. SKYRIZI [Suspect]
     Active Substance: RISANKIZUMAB-RZAA
     Indication: Psoriatic arthropathy
     Route: 058
     Dates: start: 20221007

REACTIONS (9)
  - Parathyroidectomy [Recovering/Resolving]
  - Mental disorder [Unknown]
  - Osteoporosis [Unknown]
  - COVID-19 [Unknown]
  - Eye operation [Unknown]
  - Artificial crown procedure [Unknown]
  - Epidural injection [Unknown]
  - Sciatica [Unknown]
  - Malaise [Unknown]

NARRATIVE: CASE EVENT DATE: 20230901
